FAERS Safety Report 20091768 (Version 1)
Quarter: 2021Q4

REPORT INFORMATION
  Report Type: Spontaneous
  Country: US (occurrence: US)
  Receive Date: 20211119
  Receipt Date: 20211119
  Transmission Date: 20220304
  Serious: Yes (Death)
  Sender: FDA-Public Use
  Company Number: US-LUNDBECK-DKLU3041215

PATIENT
  Age: 78 Year
  Sex: Female

DRUGS (2)
  1. NORTHERA [Suspect]
     Active Substance: DROXIDOPA
     Indication: Orthostatic hypotension
     Route: 048
     Dates: start: 201802, end: 202110
  2. NORTHERA [Suspect]
     Active Substance: DROXIDOPA
     Indication: Syncope

REACTIONS (1)
  - Death [Fatal]

NARRATIVE: CASE EVENT DATE: 20211020
